FAERS Safety Report 5727364-0 (Version None)
Quarter: 2008Q2

REPORT INFORMATION
  Report Type: 
  Country: None (occurrence: None)
  Receive Date: 20080505
  Receipt Date: 20080423
  Transmission Date: 20081010
  Serious: Yes (Other)
  Sender: FDA-Public Use
  Company Number: US-ROCHE-533390

PATIENT
  Sex: Male
  Weight: 72.6 kg

DRUGS (1)
  1. ACCUTANE [Suspect]
     Route: 048
     Dates: start: 20001018, end: 20010314

REACTIONS (23)
  - ABDOMINAL PAIN [None]
  - ANAL FISSURE [None]
  - ANXIETY [None]
  - COLITIS [None]
  - COLITIS ULCERATIVE [None]
  - DEPRESSION [None]
  - DRY EYE [None]
  - DRY SKIN [None]
  - EYE LASER SURGERY [None]
  - FATIGUE [None]
  - GASTROENTERITIS [None]
  - GASTROOESOPHAGEAL REFLUX DISEASE [None]
  - INFLAMMATORY BOWEL DISEASE [None]
  - INSOMNIA [None]
  - LIP DRY [None]
  - LOSS OF CONSCIOUSNESS [None]
  - MICROCYTIC ANAEMIA [None]
  - NASAL DRYNESS [None]
  - NAUSEA [None]
  - PANIC ATTACK [None]
  - PROCTOCOLITIS [None]
  - SUPRAVENTRICULAR EXTRASYSTOLES [None]
  - WEIGHT DECREASED [None]
